FAERS Safety Report 7028553-8 (Version None)
Quarter: 2010Q4

REPORT INFORMATION
  Report Type: 
  Country: None (occurrence: None)
  Receive Date: 20101005
  Receipt Date: 20100929
  Transmission Date: 20110411
  Serious: Yes (Death)
  Sender: FDA-Public Use
  Company Number: US-GILEAD-2010-0032212

PATIENT
  Sex: Male
  Weight: 93.07 kg

DRUGS (15)
  1. LETAIRIS [Suspect]
     Indication: PULMONARY ARTERIAL HYPERTENSION
     Route: 048
     Dates: start: 20081020
  2. REVATIO [Concomitant]
  3. COUMADIN [Concomitant]
  4. OXYGEN [Concomitant]
  5. AGGRENOX [Concomitant]
  6. LASIX [Concomitant]
  7. DIGOXIN [Concomitant]
  8. METOLAZONE [Concomitant]
  9. PHENYTOIN [Concomitant]
  10. PREDNISONE [Concomitant]
  11. LANTUS [Concomitant]
  12. METFORMIN [Concomitant]
  13. STARLIX [Concomitant]
  14. CRESTOR [Concomitant]
  15. POTASSIUM CHLORIDE [Concomitant]

REACTIONS (1)
  - DEATH [None]
